FAERS Safety Report 6969523-5 (Version None)
Quarter: 2010Q3

REPORT INFORMATION
  Report Type: 
  Country: None (occurrence: None)
  Receive Date: 20100907
  Receipt Date: 20100907
  Transmission Date: 20110219
  Serious: Yes (Hospitalization)
  Sender: FDA-Public Use
  Company Number: None

PATIENT
  Sex: Male

DRUGS (1)
  1. REQUIP [Suspect]
     Indication: RESTLESS LEGS SYNDROME
     Dosage: MULTIPLE ONCE DAILY PO
     Route: 048
     Dates: start: 20100101

REACTIONS (4)
  - IMPULSE-CONTROL DISORDER [None]
  - LIBIDO INCREASED [None]
  - MANIA [None]
  - UNEVALUABLE EVENT [None]
